FAERS Safety Report 10075359 (Version 2)
Quarter: 2014Q2

REPORT INFORMATION
  Report Type: Report from Study
  Country: US (occurrence: US)
  Receive Date: 20140414
  Receipt Date: 20140414
  Transmission Date: 20141212
  Serious: Yes (Hospitalization, Other)
  Sender: FDA-Public Use
  Company Number: US-ROCHE-1357794

PATIENT
  Age: 51 Year
  Sex: Female
  Weight: 82.63 kg

DRUGS (3)
  1. HERCEPTIN [Suspect]
     Indication: BREAST CANCER
     Route: 042
     Dates: start: 20140131, end: 20140227
  2. PERTUZUMAB [Suspect]
     Indication: BREAST CANCER
     Route: 042
     Dates: start: 20140131, end: 20140227
  3. TETRAHYDROCANNABINOL [Concomitant]

REACTIONS (9)
  - Oesophageal infection [Recovering/Resolving]
  - Lung disorder [Unknown]
  - Full blood count decreased [Recovering/Resolving]
  - Bronchitis [Not Recovered/Not Resolved]
  - Pneumonia [Not Recovered/Not Resolved]
  - Weight decreased [Not Recovered/Not Resolved]
  - Syncope [Not Recovered/Not Resolved]
  - Loss of consciousness [Unknown]
  - Electrolyte imbalance [Unknown]
